FAERS Safety Report 4536884-6 (Version None)
Quarter: 2004Q4

REPORT INFORMATION
  Report Type: 
  Country: None (occurrence: None)
  Receive Date: 20041223
  Receipt Date: 20041218
  Transmission Date: 20050328
  Serious: Yes (Hospitalization)
  Sender: FDA-Public Use
  Company Number: GB-GLAXOSMITHKLINE-B0362241A

PATIENT
  Age: 11 Year
  Sex: Female
  Weight: 30 kg

DRUGS (1)
  1. LAMOTRIGINE [Suspect]
     Indication: EPILEPSY
     Dosage: 400MG PER DAY
     Route: 048
     Dates: start: 20040511, end: 20041023

REACTIONS (5)
  - HEPATOSPLENOMEGALY [None]
  - LYMPHADENOPATHY [None]
  - LYMPHOPENIA [None]
  - PYREXIA [None]
  - WEIGHT DECREASED [None]
